FAERS Safety Report 15902975 (Version 1)
Quarter: 2019Q1

REPORT INFORMATION
  Report Type: Spontaneous
  Country: DE (occurrence: DE)
  Receive Date: 20190202
  Receipt Date: 20190202
  Transmission Date: 20190417
  Serious: Yes (Hospitalization, Other)
  Sender: FDA-Public Use
  Company Number: DE-AUROBINDO-AUR-APL-2019-004779

PATIENT

DRUGS (2)
  1. ALENDRONATE 70 MG TABLETS [Suspect]
     Active Substance: ALENDRONATE SODIUM
     Dosage: 70 MILLIGRAM, ONCE A DAY
     Route: 048
  2. ALENDRONATE 70 MG TABLETS [Suspect]
     Active Substance: ALENDRONATE SODIUM
     Indication: PRODUCT USED FOR UNKNOWN INDICATION
     Dosage: (1) WEEKLY
     Route: 048

REACTIONS (6)
  - Incorrect dose administered [Unknown]
  - General physical condition decreased [Unknown]
  - Wrong dose [Unknown]
  - Depressed level of consciousness [Unknown]
  - Cardiac failure [Unknown]
  - Unresponsive to stimuli [Unknown]
